FAERS Safety Report 11129914 (Version 3)
Quarter: 2015Q3

REPORT INFORMATION
  Report Type: Report from Study
  Country: DE (occurrence: DE)
  Receive Date: 20150521
  Receipt Date: 20150914
  Transmission Date: 20151125
  Serious: Yes (Hospitalization, Other)
  Sender: FDA-Public Use
  Company Number: DE-JAZZ-2015-DE-007162

PATIENT
  Age: 50 Year
  Sex: Male
  Weight: 90 kg

DRUGS (6)
  1. XYREM [Suspect]
     Active Substance: SODIUM OXYBATE
     Indication: NARCOLEPSY
     Dosage: 2.25 G, BID
     Dates: start: 20140618, end: 20141214
  2. XYREM [Suspect]
     Active Substance: SODIUM OXYBATE
     Dosage: 6 G, AS SECOND DOSE
     Route: 048
     Dates: start: 20141215, end: 20150202
  3. XYREM [Suspect]
     Active Substance: SODIUM OXYBATE
     Indication: CATAPLEXY
     Dosage: 4.5 G, AS FIRST DOSE
     Route: 048
     Dates: start: 20141215, end: 20150202
  4. XYREM [Suspect]
     Active Substance: SODIUM OXYBATE
     Dosage: GRADUAL DECREASE TO A DOSE OF 5 G
     Route: 048
     Dates: start: 20150203, end: 201502
  5. XYREM [Suspect]
     Active Substance: SODIUM OXYBATE
     Dosage: 5 G, UNK
     Route: 048
     Dates: start: 20150206
  6. MODAFINIL. [Concomitant]
     Active Substance: MODAFINIL
     Indication: PRODUCT USED FOR UNKNOWN INDICATION
     Dosage: UNK
     Dates: start: 20141215

REACTIONS (4)
  - Cataplexy [Unknown]
  - Defect conduction intraventricular [Unknown]
  - Sleep apnoea syndrome [Recovered/Resolved]
  - Somnolence [Unknown]

NARRATIVE: CASE EVENT DATE: 201501
